FAERS Safety Report 5735070-1 (Version None)
Quarter: 2008Q2

REPORT INFORMATION
  Report Type: 
  Country: None (occurrence: None)
  Receive Date: 20080512
  Receipt Date: 20080502
  Transmission Date: 20081010
  Serious: Yes (Other)
  Sender: FDA-Public Use
  Company Number: PHEH2006US10970

PATIENT
  Age: 53 Year
  Sex: Female

DRUGS (4)
  1. AREDIA [Suspect]
     Indication: METASTASES TO BONE
     Dosage: 90 MG Q4W
     Route: 042
     Dates: start: 20031105, end: 20050105
  2. ZOMETA [Suspect]
  3. FEMARA [Concomitant]
     Dosage: 2.5 MG, QD
     Route: 048
  4. DEXAMETHASONE [Concomitant]
     Dosage: 10 MG Q4W
     Route: 042
     Dates: start: 20031105

REACTIONS (9)
  - ANXIETY [None]
  - DECREASED INTEREST [None]
  - DIZZINESS [None]
  - GENERAL PHYSICAL HEALTH DETERIORATION [None]
  - HYPERHIDROSIS [None]
  - OSTEONECROSIS [None]
  - PAIN [None]
  - SYNCOPE [None]
  - VERTIGO [None]
